FAERS Safety Report 11052486 (Version 1)
Quarter: 2015Q2

REPORT INFORMATION
  Report Type: Spontaneous
  Country: US (occurrence: US)
  Receive Date: 20150421
  Receipt Date: 20150421
  Transmission Date: 20150821
  Serious: No
  Sender: FDA-Public Use
  Company Number: US-ASTRAZENECA-2014SE70040

PATIENT
  Age: 30 Year
  Sex: Female

DRUGS (4)
  1. FASLODEX [Suspect]
     Active Substance: FULVESTRANT
     Indication: BREAST CANCER STAGE IV
     Route: 030
  2. LEUPROLIDE ACETATE. [Suspect]
     Active Substance: LEUPROLIDE ACETATE
     Indication: ANTIOESTROGEN THERAPY
     Route: 065
  3. FASLODEX [Suspect]
     Active Substance: FULVESTRANT
     Indication: ANTIOESTROGEN THERAPY
     Route: 030
  4. LEUPROLIDE ACETATE. [Suspect]
     Active Substance: LEUPROLIDE ACETATE
     Indication: BREAST CANCER STAGE IV
     Route: 065

REACTIONS (5)
  - Vulvovaginal dryness [Unknown]
  - Ovarian failure [Unknown]
  - Amenorrhoea [Unknown]
  - Hot flush [Unknown]
  - Endometrial hypertrophy [Unknown]
